FAERS Safety Report 24835526 (Version 1)
Quarter: 2025Q1

REPORT INFORMATION
  Report Type: Report from Study
  Country: US (occurrence: US)
  Receive Date: 20250113
  Receipt Date: 20250113
  Transmission Date: 20250409
  Serious: Yes (Hospitalization, Other)
  Sender: GILEAD
  Company Number: US-GILEAD-2025-0699645

PATIENT
  Sex: Female

DRUGS (46)
  1. AZTREONAM LYSINE [Suspect]
     Active Substance: AZTREONAM LYSINE
     Indication: Cystic fibrosis
     Dosage: ALTERNATE FOR 28 DAYS ON AND 28 DAYS O
     Route: 055
  2. AZTREONAM LYSINE [Suspect]
     Active Substance: AZTREONAM LYSINE
     Indication: Pseudomonas infection
  3. EMGALITY [Concomitant]
     Active Substance: GALCANEZUMAB-GNLM
  4. TRESIBA [Concomitant]
     Active Substance: INSULIN DEGLUDEC
  5. SUMATRIPTAN SUCCINATE [Concomitant]
     Active Substance: SUMATRIPTAN SUCCINATE
  6. DESIPRAMINE HYDROCHLORIDE [Concomitant]
     Active Substance: DESIPRAMINE HYDROCHLORIDE
  7. COLISTIMETHATE [Concomitant]
     Active Substance: COLISTIMETHATE SODIUM
  8. LASIX [Concomitant]
     Active Substance: FUROSEMIDE
  9. NITROGLYCERIN [Concomitant]
     Active Substance: NITROGLYCERIN
  10. HUMALOG [Concomitant]
     Active Substance: INSULIN LISPRO
  11. CREON [Concomitant]
     Active Substance: PANCRELIPASE AMYLASE\PANCRELIPASE LIPASE\PANCRELIPASE PROTEASE
  12. ZYRTEC [Concomitant]
     Active Substance: CETIRIZINE HYDROCHLORIDE
  13. PREMARIN [Concomitant]
     Active Substance: ESTROGENS, CONJUGATED
  14. AZITHROMYCIN [Concomitant]
     Active Substance: AZITHROMYCIN
  15. LEVALBUTEROL HYDROCHLORIDE [Concomitant]
     Active Substance: LEVALBUTEROL HYDROCHLORIDE
  16. CYANOCOBALAMIN [Concomitant]
     Active Substance: CYANOCOBALAMIN
  17. LEVEMIR [Concomitant]
     Active Substance: INSULIN DETEMIR
  18. LAMICTAL [Concomitant]
     Active Substance: LAMOTRIGINE
  19. SYMBICORT [Concomitant]
     Active Substance: BUDESONIDE\FORMOTEROL FUMARATE DIHYDRATE
  20. ALBUTEROL SULFATE [Concomitant]
     Active Substance: ALBUTEROL SULFATE
  21. DIAZEPAM [Concomitant]
     Active Substance: DIAZEPAM
  22. CARVEDILOL [Concomitant]
     Active Substance: CARVEDILOL
  23. SCOPOLAMINE HYDROCHLORIDE [Concomitant]
     Active Substance: SCOPOLAMINE HYDROCHLORIDE
  24. PANTOPRAZOLE SODIUM [Concomitant]
     Active Substance: PANTOPRAZOLE SODIUM
  25. DICYCLOMINE HYDROCHLORIDE [Concomitant]
     Active Substance: DICYCLOMINE HYDROCHLORIDE
  26. SPIRIVA RESPIMAT [Concomitant]
     Active Substance: TIOTROPIUM BROMIDE
  27. MONTELUKAST SODIUM [Concomitant]
     Active Substance: MONTELUKAST SODIUM
  28. LEVETIRACETAM [Concomitant]
     Active Substance: LEVETIRACETAM
  29. FENOFIBRATE [Concomitant]
     Active Substance: FENOFIBRATE
  30. AMLODIPINE BESYLATE [Concomitant]
     Active Substance: AMLODIPINE BESYLATE
  31. LEVOCETIRIZINE DIHYDROCHLORIDE [Concomitant]
     Active Substance: LEVOCETIRIZINE DIHYDROCHLORIDE
  32. RIBOFLAVIN [Concomitant]
     Active Substance: RIBOFLAVIN
  33. LOSARTAN POTASSIUM [Concomitant]
     Active Substance: LOSARTAN POTASSIUM
  34. MECLIZINE HYDROCHLORIDE [Concomitant]
     Active Substance: MECLIZINE HYDROCHLORIDE
  35. CHOLINE [Concomitant]
     Active Substance: CHOLINE
  36. SANCUSO [Concomitant]
     Active Substance: GRANISETRON
  37. HYOSCYAMINE SULFATE ER [Concomitant]
  38. EPIPEN [Concomitant]
     Active Substance: EPINEPHRINE
  39. GABAPENTIN [Concomitant]
     Active Substance: GABAPENTIN
  40. VITAMIN D2 [Concomitant]
     Active Substance: ERGOCALCIFEROL
  41. ADDERALL [Concomitant]
     Active Substance: AMPHETAMINE ASPARTATE\AMPHETAMINE SULFATE\DEXTROAMPHETAMINE SACCHARATE\DEXTROAMPHETAMINE SULFATE
  42. HYDROXYCHLOROQUINE DIPHOSPHATE [Concomitant]
     Active Substance: HYDROXYCHLOROQUINE DIPHOSPHATE
  43. NUVIGIL [Concomitant]
     Active Substance: ARMODAFINIL
  44. XIFAXAN [Concomitant]
     Active Substance: RIFAXIMIN
  45. NURTEC ODT [Concomitant]
     Active Substance: RIMEGEPANT SULFATE
  46. IRON [Concomitant]
     Active Substance: IRON

REACTIONS (1)
  - Cystic fibrosis [Not Recovered/Not Resolved]
